FAERS Safety Report 8014117-6 (Version None)
Quarter: 2011Q4

REPORT INFORMATION
  Report Type: 
  Country: None (occurrence: None)
  Receive Date: 20111223
  Receipt Date: 20111220
  Transmission Date: 20120403
  Serious: Yes (Death)
  Sender: FDA-Public Use
  Company Number: 110423

PATIENT
  Age: 87 Year
  Sex: Male

DRUGS (1)
  1. GOLYTELY [Suspect]
     Indication: OFF LABEL USE
     Dosage: NG
     Dates: start: 20111101

REACTIONS (4)
  - RENAL FAILURE [None]
  - CARDIAC FAILURE [None]
  - BLOOD PRESSURE DECREASED [None]
  - LOSS OF CONSCIOUSNESS [None]
